FAERS Safety Report 9285364 (Version 1)
Quarter: 2013Q2

REPORT INFORMATION
  Report Type: Spontaneous
  Country: US (occurrence: None)
  Receive Date: 20130507
  Receipt Date: 20130507
  Transmission Date: 20140414
  Serious: Yes (Hospitalization)
  Sender: FDA-Public Use
  Company Number: AUR-APL-2013-03743

PATIENT
  Age: 85 Year
  Sex: Female

DRUGS (7)
  1. ALENDRONIC ACID [Suspect]
     Indication: OSTEOPOROSIS
     Dosage: (70 MG, 1 WK), OTHER
     Route: 050
  2. RANITIDINE(RANITIDINE) [Concomitant]
  3. FERROUS SULFATE(FERROUS SULFATE) [Concomitant]
  4. CALCIUM W/VITAMIN D(CALCIUM D3 /01483701/) [Concomitant]
  5. LISINOPRIL(LISINOPRIL) [Concomitant]
  6. MIRTAZAPINE(MIRTAZAPINE) [Concomitant]
  7. ASPIRIN(ACETYLSALICYLIC ACID) [Concomitant]

REACTIONS (3)
  - Hypotension [None]
  - Haematemesis [None]
  - Erosive oesophagitis [None]
